FAERS Safety Report 23861249 (Version 1)
Quarter: 2024Q2

REPORT INFORMATION
  Report Type: Spontaneous
  Country: SE (occurrence: None)
  Receive Date: 20240516
  Receipt Date: 20240516
  Transmission Date: 20240716
  Serious: Yes (Other)
  Sender: FDA-Public Use
  Company Number: SE-ROCHE-3562202

PATIENT
  Sex: Male

DRUGS (1)
  1. GLOFITAMAB [Suspect]
     Active Substance: GLOFITAMAB
     Indication: Product used for unknown indication
     Dosage: RECEIVED THE LAST DOSE OF GLOFITAMAB ON 28/DEC/2023
     Route: 065

REACTIONS (2)
  - Oesophageal carcinoma [Unknown]
  - Adenocarcinoma [Unknown]
